FAERS Safety Report 4379120-6 (Version None)
Quarter: 2004Q2

REPORT INFORMATION
  Report Type: 
  Country: None (occurrence: None)
  Receive Date: 20040610
  Receipt Date: 20040602
  Transmission Date: 20050107
  Serious: Yes (Hospitalization, Other)
  Sender: FDA-Public Use
  Company Number: 2004212817US

PATIENT
  Age: 39 Year
  Sex: Female

DRUGS (4)
  1. CELEBREX [Suspect]
     Indication: ARTHRITIS
     Dosage: SEE IMAGE
     Dates: start: 19980101, end: 20020101
  2. CELEBREX [Suspect]
     Indication: ARTHRITIS
     Dosage: SEE IMAGE
     Dates: start: 20040401
  3. NEURONTIN [Concomitant]
  4. DEPAKOTE [Concomitant]

REACTIONS (11)
  - CYST [None]
  - DYSPHAGIA [None]
  - GASTRIC DISORDER [None]
  - HAEMATOCHEZIA [None]
  - HYPERSENSITIVITY [None]
  - HYSTERECTOMY [None]
  - INTESTINAL PERFORATION [None]
  - MULTIPLE ALLERGIES [None]
  - NEOPLASM [None]
  - POSTOPERATIVE ADHESION [None]
  - THROAT TIGHTNESS [None]
